FAERS Safety Report 25659991 (Version 1)
Quarter: 2025Q3

REPORT INFORMATION
  Report Type: Spontaneous
  Country: BR (occurrence: BR)
  Receive Date: 20250808
  Receipt Date: 20250808
  Transmission Date: 20251021
  Serious: Yes (Hospitalization, Other)
  Sender: GLAXOSMITHKLINE
  Company Number: BR-GLAXOSMITHKLINE INC-BR2025GSK100891

PATIENT
  Age: 48 Year
  Sex: Male

DRUGS (18)
  1. BUPROPION [Suspect]
     Active Substance: BUPROPION
     Indication: Major depression
  2. TRANYLCYPROMINE [Suspect]
     Active Substance: TRANYLCYPROMINE
     Indication: Major depression
     Dosage: 60 MG, 1D
  3. TRANYLCYPROMINE [Suspect]
     Active Substance: TRANYLCYPROMINE
     Indication: Anhedonia
     Dosage: 2400 MG, 1D
  4. TRANYLCYPROMINE [Suspect]
     Active Substance: TRANYLCYPROMINE
     Dosage: 160 MG, 1D
  5. ARIPIPRAZOLE [Suspect]
     Active Substance: ARIPIPRAZOLE
     Indication: Depression
     Dosage: 5 MG, 1D
  6. LISDEXAMFETAMINE [Suspect]
     Active Substance: LISDEXAMFETAMINE
     Indication: Depression
     Dosage: 50 MG, 1D (CONSUMED UP TO 20 TABLETS)
  7. SELEGILINE [Suspect]
     Active Substance: SELEGILINE
     Indication: Depression
  8. AMISULPRIDE [Suspect]
     Active Substance: AMISULPRIDE
     Indication: Depression
  9. OLANZAPINE [Suspect]
     Active Substance: OLANZAPINE
     Indication: Depression
  10. AMITRIPTYLINE [Suspect]
     Active Substance: AMITRIPTYLINE
     Indication: Depression
  11. BREXPIPRAZOLE [Suspect]
     Active Substance: BREXPIPRAZOLE
     Indication: Depression
  12. PIOGLITAZONE [Suspect]
     Active Substance: PIOGLITAZONE
     Indication: Depression
  13. QUETIAPINE [Suspect]
     Active Substance: QUETIAPINE
     Indication: Depression
  14. MIRTAZAPINE [Suspect]
     Active Substance: MIRTAZAPINE
     Indication: Depression
  15. METAMIZOLE [Suspect]
     Active Substance: METAMIZOLE
     Indication: Product used for unknown indication
     Dosage: 500 MG, 1D (CONSUMED AT DOSES REACHING 10 TABLETS )
  16. PREGABALIN [Concomitant]
     Active Substance: PREGABALIN
     Indication: Product used for unknown indication
     Dosage: 300 MG, 1D
  17. ESZOPICLONE [Concomitant]
     Active Substance: ESZOPICLONE
     Indication: Product used for unknown indication
     Dosage: 6 MG, 1D
  18. KETAMINE [Concomitant]
     Active Substance: KETAMINE
     Indication: Product used for unknown indication

REACTIONS (9)
  - Drug abuse [Unknown]
  - Intentional product misuse [Unknown]
  - Drug dependence [Unknown]
  - Mental disorder [Unknown]
  - Overdose [Unknown]
  - Drug tolerance [Unknown]
  - Emotional distress [Unknown]
  - Withdrawal syndrome [Unknown]
  - Treatment noncompliance [Unknown]
